FAERS Safety Report 17909689 (Version 2)
Quarter: 2020Q2

REPORT INFORMATION
  Report Type: Spontaneous
  Country: US (occurrence: US)
  Receive Date: 20200617
  Receipt Date: 20200625
  Transmission Date: 20200714
  Serious: Yes (Hospitalization)
  Sender: FDA-Public Use
  Company Number: US-ACTELION-A-US2020-206184

PATIENT
  Sex: Female

DRUGS (2)
  1. REMODULIN [Concomitant]
     Active Substance: TREPROSTINIL
  2. OPSUMIT [Suspect]
     Active Substance: MACITENTAN
     Indication: PULMONARY ARTERIAL HYPERTENSION
     Dosage: 10 MG, QD
     Route: 048
     Dates: start: 20190625

REACTIONS (2)
  - Therapy change [Unknown]
  - Hospitalisation [Not Recovered/Not Resolved]
